FAERS Safety Report 7288997-6 (Version None)
Quarter: 2011Q1

REPORT INFORMATION
  Report Type: 
  Country: None (occurrence: None)
  Receive Date: 20110211
  Receipt Date: 20110209
  Transmission Date: 20110831
  Serious: Yes (Life-Threatening)
  Sender: FDA-Public Use
  Company Number: GXKR2010GB08093

PATIENT
  Age: 61 Year
  Sex: Female
  Weight: 69.85 kg

DRUGS (2)
  1. VARENICLINE TARTRATE [Interacting]
     Dosage: 1 MG, BID
     Route: 048
     Dates: start: 20090415, end: 20090710
  2. FLUOXETINE [Suspect]
     Indication: DEPRESSION
     Route: 065

REACTIONS (3)
  - DYSPEPSIA [None]
  - DRUG INTERACTION [None]
  - DEPRESSION SUICIDAL [None]
